FAERS Safety Report 5534753-6 (Version None)
Quarter: 2007Q4

REPORT INFORMATION
  Report Type: 
  Country: None (occurrence: None)
  Receive Date: 20071130
  Receipt Date: 20071120
  Transmission Date: 20080405
  Serious: Yes (Life-Threatening, Hospitalization, Other)
  Sender: FDA-Public Use
  Company Number: GXKR2007GB10000

PATIENT
  Age: 52 Year
  Sex: Female
  Weight: 63 kg

DRUGS (1)
  1. SERTRALINE [Suspect]
     Indication: DEPRESSION
     Dosage: 50 MG, ORAL
     Route: 048
     Dates: start: 20060301, end: 20070901

REACTIONS (2)
  - CHOLESTASIS [None]
  - SUBACUTE HEPATIC FAILURE [None]
